FAERS Safety Report 7852058-5 (Version None)
Quarter: 2011Q4

REPORT INFORMATION
  Report Type: 
  Country: None (occurrence: None)
  Receive Date: 20111026
  Receipt Date: 20111018
  Transmission Date: 20120403
  Serious: Yes (Other)
  Sender: FDA-Public Use
  Company Number: US-ASTRAZENECA-2011SE39984

PATIENT
  Age: 594 Month
  Sex: Female
  Weight: 56.7 kg

DRUGS (2)
  1. CALCIUM CARBONATE [Concomitant]
  2. NEXIUM [Suspect]
     Route: 048

REACTIONS (12)
  - MUSCULOSKELETAL STIFFNESS [None]
  - OSTEOPENIA [None]
  - FOOT FRACTURE [None]
  - FALL [None]
  - CONTUSION [None]
  - OEDEMA PERIPHERAL [None]
  - LOWER LIMB FRACTURE [None]
  - ATROPHY [None]
  - AVULSION FRACTURE [None]
  - BACK PAIN [None]
  - VOMITING [None]
  - TENDERNESS [None]
